FAERS Safety Report 9931400 (Version 2)
Quarter: 2014Q1

REPORT INFORMATION
  Report Type: Spontaneous
  Country: US (occurrence: US)
  Receive Date: 20140228
  Receipt Date: 20140327
  Transmission Date: 20141002
  Serious: No
  Sender: FDA-Public Use
  Company Number: US-009507513-1402USA012134

PATIENT
  Age: 57 Year
  Sex: Female

DRUGS (5)
  1. JANUMET [Suspect]
     Indication: DIABETES MELLITUS
     Dosage: 50/1000 MG; ONE TABLET  TWICE DAILY
     Route: 048
     Dates: start: 2010
  2. ACTOS [Concomitant]
  3. EFFEXOR [Concomitant]
  4. LISINOPRIL [Concomitant]
     Route: 048
  5. MOBIC [Concomitant]

REACTIONS (2)
  - Fatigue [Not Recovered/Not Resolved]
  - Drug dose omission [Unknown]
